FAERS Safety Report 13653961 (Version 1)
Quarter: 2017Q2

REPORT INFORMATION
  Report Type: Spontaneous
  Country: US (occurrence: US)
  Receive Date: 20170614
  Receipt Date: 20170614
  Transmission Date: 20170830
  Serious: No
  Sender: FDA-Public Use
  Company Number: US-009507513-1705USA009953

PATIENT
  Age: 16 Year
  Sex: Female
  Weight: 58.05 kg

DRUGS (1)
  1. NEXPLANON [Suspect]
     Active Substance: ETONOGESTREL
     Indication: MENSTRUAL CYCLE MANAGEMENT
     Dosage: 1 IMPLANT, EVERY 3 YEARS, IN THE LEFT ARM
     Route: 059

REACTIONS (4)
  - Acne [Unknown]
  - Muscle spasms [Unknown]
  - Menorrhagia [Unknown]
  - Product use in unapproved indication [Unknown]
